FAERS Safety Report 8321452-0 (Version None)
Quarter: 2012Q2

REPORT INFORMATION
  Report Type: 
  Country: None (occurrence: None)
  Receive Date: 20120430
  Receipt Date: 20120430
  Transmission Date: 20120825
  Serious: No
  Sender: FDA-Public Use
  Company Number: None

PATIENT
  Age: 51 Year
  Sex: Male
  Weight: 161.02 kg

DRUGS (2)
  1. TRIMIX NAPB#1245352245 [Concomitant]
     Indication: ERECTILE DYSFUNCTION
     Dosage: 30  MG
     Route: 017
     Dates: start: 20120415, end: 20120415
  2. MENS ANROPAUSE CREAM [Suspect]
     Indication: ERECTILE DYSFUNCTION
     Dosage: ONE PUMP
     Route: 061
     Dates: start: 20120415, end: 20120415

REACTIONS (2)
  - PAIN [None]
  - DRUG INEFFECTIVE [None]
